FAERS Safety Report 20387146 (Version 1)
Quarter: 2022Q1

REPORT INFORMATION
  Report Type: Spontaneous
  Country: US (occurrence: US)
  Receive Date: 20220127
  Receipt Date: 20220127
  Transmission Date: 20220423
  Serious: No
  Sender: FDA-Public Use
  Company Number: US-BRISTOL-MYERS SQUIBB COMPANY-BMS-2022-007278

PATIENT
  Age: 43 Year
  Sex: Female
  Weight: 61.224 kg

DRUGS (3)
  1. SPRYCEL [Suspect]
     Active Substance: DASATINIB
     Indication: Chronic myeloid leukaemia
     Dosage: 100 MILLIGRAM, DAILY
     Route: 048
     Dates: start: 202106
  2. SPRYCEL [Suspect]
     Active Substance: DASATINIB
     Dosage: 80 MILLIGRAM, QD
     Route: 048
  3. SPRYCEL [Suspect]
     Active Substance: DASATINIB
     Dosage: 50 MILLIGRAM, DAILY
     Route: 048

REACTIONS (1)
  - COVID-19 [Unknown]

NARRATIVE: CASE EVENT DATE: 20211130
